FAERS Safety Report 6863459-6 (Version None)
Quarter: 2010Q3

REPORT INFORMATION
  Report Type: 
  Country: None (occurrence: None)
  Receive Date: 20100721
  Receipt Date: 20100713
  Transmission Date: 20110219
  Serious: Yes (Other)
  Sender: FDA-Public Use
  Company Number: US-PFIZER INC-2010087823

PATIENT
  Sex: Male

DRUGS (2)
  1. AMLODIPINE BESYLATE [Suspect]
  2. NORVASC [Concomitant]

REACTIONS (2)
  - ALBUMIN URINE PRESENT [None]
  - BLOOD PRESSURE INCREASED [None]
